FAERS Safety Report 24906156 (Version 1)
Quarter: 2025Q1

REPORT INFORMATION
  Report Type: Spontaneous
  Country: CH (occurrence: CH)
  Receive Date: 20250130
  Receipt Date: 20250130
  Transmission Date: 20250409
  Serious: Yes (Other)
  Sender: TEVA
  Company Number: CH-Labatec_Pharma_SA_1000310-LAB-25-005

PATIENT
  Sex: Male

DRUGS (1)
  1. PACLITAXEL [Suspect]
     Active Substance: PACLITAXEL
     Indication: Hepatic cancer
     Route: 065
     Dates: start: 20241119

REACTIONS (6)
  - Neuropathy peripheral [Unknown]
  - Hiccups [Unknown]
  - Off label use [Unknown]
  - Asthenia [Unknown]
  - Alopecia totalis [Unknown]
  - Abdominal pain [Unknown]

NARRATIVE: CASE EVENT DATE: 20241201
